FAERS Safety Report 18622255 (Version 1)
Quarter: 2020Q4

REPORT INFORMATION
  Report Type: Other
  Country: MX (occurrence: MX)
  Receive Date: 20201216
  Receipt Date: 20201216
  Transmission Date: 20210114
  Serious: Yes (Other)
  Sender: FDA-Public Use
  Company Number: MX-ROCHE-2733098

PATIENT
  Age: 46 Year
  Sex: Female
  Weight: 59 kg

DRUGS (4)
  1. TRAMACET [Concomitant]
     Active Substance: ACETAMINOPHEN\TRAMADOL
     Indication: PAIN
     Dosage: DOSE AND FREQUENCY WERE NOT REPORTED
  2. ROACTEMRA [Suspect]
     Active Substance: TOCILIZUMAB
     Indication: RHEUMATOID ARTHRITIS
     Route: 042
     Dates: start: 20180801
  3. AZULFIDINE [Concomitant]
     Active Substance: SULFASALAZINE
  4. ROACTEMRA [Suspect]
     Active Substance: TOCILIZUMAB
     Indication: RHEUMATOID ARTHRITIS
     Dosage: 162MG/0.9ML
     Route: 058
     Dates: start: 202006, end: 202007

REACTIONS (3)
  - Mobility decreased [Recovered/Resolved]
  - Malaise [Unknown]
  - Musculoskeletal stiffness [Recovered/Resolved]

NARRATIVE: CASE EVENT DATE: 202006
